FAERS Safety Report 5431957-8 (Version None)
Quarter: 2007Q3

REPORT INFORMATION
  Report Type: 
  Country: None (occurrence: None)
  Receive Date: 20070731
  Receipt Date: 20070507
  Transmission Date: 20080115
  Serious: No
  Sender: FDA-Public Use
  Company Number: US200705001969

PATIENT
  Age: 70 Year
  Sex: Male

DRUGS (12)
  1. BYETTA [Suspect]
     Indication: TYPE 2 DIABETES MELLITUS
     Dosage: 5 UG, 2/D, SUBCUTANEOUS   10 UG, 2/D, SUBCUTANEOUS
     Route: 058
     Dates: start: 20060901, end: 20061201
  2. BYETTA [Suspect]
     Indication: TYPE 2 DIABETES MELLITUS
     Dosage: 5 UG, 2/D, SUBCUTANEOUS   10 UG, 2/D, SUBCUTANEOUS
     Route: 058
     Dates: start: 20061201
  3. TOPROL-XL [Concomitant]
  4. LIPITOR [Concomitant]
  5. METFORMIN HCL [Concomitant]
  6. TRICOR [Concomitant]
  7. GLIPIZIDE [Concomitant]
  8. ASA (ASPIRIN (ACETYLSALICYLIC ACID) UNKNOWN FORMULATION) [Concomitant]
  9. GERITOL (FERRIC AMMONIUM CITRATE, METHIONINE, VITAMIN B NOS) [Concomitant]
  10. AVAPRO [Concomitant]
  11. NORVASC [Concomitant]
  12. OCUVITE (ASCORBIC ACID, RETINOL, TOCOPHEROL) [Concomitant]

REACTIONS (4)
  - BLOOD GLUCOSE INCREASED [None]
  - HYPERTENSION [None]
  - INCREASED APPETITE [None]
  - INJECTION SITE PAIN [None]
